FAERS Safety Report 23523629 (Version 1)
Quarter: 2024Q1

REPORT INFORMATION
  Report Type: Spontaneous
  Country: FR (occurrence: FR)
  Receive Date: 20240214
  Receipt Date: 20240214
  Transmission Date: 20240410
  Serious: Yes (Hospitalization)
  Sender: FDA-Public Use
  Company Number: None

PATIENT
  Sex: Female
  Weight: 24.6 kg

DRUGS (2)
  1. LORLATINIB [Suspect]
     Active Substance: LORLATINIB
     Indication: Neuroblastoma
     Dosage: 115 MG/M2, 1X/DAY
     Route: 048
     Dates: start: 20230109, end: 202310
  2. LORLATINIB [Suspect]
     Active Substance: LORLATINIB
     Dosage: 115 MG/M2, 1X/DAY
     Route: 048
     Dates: start: 20231127, end: 20240104

REACTIONS (5)
  - Pleural effusion [Recovered/Resolved]
  - Pericardial effusion [Recovered/Resolved]
  - Interstitial lung disease [Recovering/Resolving]
  - Pulmonary arterial hypertension [Recovering/Resolving]
  - Off label use [Unknown]

NARRATIVE: CASE EVENT DATE: 20231201
